FAERS Safety Report 21986718 (Version 1)
Quarter: 2023Q1

REPORT INFORMATION
  Report Type: Report from Study
  Country: US (occurrence: None)
  Receive Date: 20230213
  Receipt Date: 20230213
  Transmission Date: 20230418
  Serious: Yes (Death, Hospitalization, Other)
  Sender: FDA-Public Use
  Company Number: US-Merck Healthcare KGaA-9382903

PATIENT
  Age: 60 Year
  Sex: Female

DRUGS (2)
  1. MAVENCLAD [Suspect]
     Active Substance: CLADRIBINE
     Indication: Multiple sclerosis
     Dosage: YEAR ONE MONTH ONE THERAPY
     Route: 048
     Dates: start: 20220607
  2. MAVENCLAD [Suspect]
     Active Substance: CLADRIBINE
     Dosage: YEAR ONE MONTH TWO THERAPY.
     Route: 048

REACTIONS (9)
  - Choking [Fatal]
  - Hypophagia [Fatal]
  - Influenza [Unknown]
  - Pneumonia [Unknown]
  - Epiglottis dysfunction [Unknown]
  - Aspiration [Unknown]
  - Decubitus ulcer [Unknown]
  - Ostomy bag placement [Unknown]
  - Lethargy [Unknown]

NARRATIVE: CASE EVENT DATE: 20221001
